FAERS Safety Report 5082119-8 (Version None)
Quarter: 2006Q3

REPORT INFORMATION
  Report Type: 
  Country: None (occurrence: None)
  Receive Date: 20060811
  Receipt Date: 20060803
  Transmission Date: 20061208
  Serious: Yes (Other)
  Sender: FDA-Public Use
  Company Number: 2006092359

PATIENT
  Sex: Male

DRUGS (3)
  1. LYRICA [Suspect]
     Indication: NEUROPATHY
     Dosage: 300 MG (150 MG, FREQUENCY: BID INTERVAL: EVERY DAY), ORAL
     Route: 048
     Dates: start: 20060401
  2. INTERFERON (INTERFERON) [Concomitant]
  3. INSULIN [Concomitant]

REACTIONS (1)
  - BONE MARROW FAILURE [None]
